FAERS Safety Report 4311741-9 (Version None)
Quarter: 2004Q1

REPORT INFORMATION
  Report Type: 
  Country: None (occurrence: None)
  Receive Date: 20040304
  Receipt Date: 20040304
  Transmission Date: 20041129
  Serious: Yes (Death)
  Sender: FDA-Public Use
  Company Number: None

PATIENT
  Age: 69 Year
  Sex: Female
  Weight: 46.6 kg

DRUGS (12)
  1. THALIDOMIDE 50MG-IV CAPSULES PO QHS [Suspect]
     Indication: METASTASES TO CENTRAL NERVOUS SYSTEM
     Dosage: 200 MG ORALLY @BEDTIME
     Route: 048
     Dates: start: 20040107, end: 20040112
  2. THALIDOMIDE 50MG-IV CAPSULES PO QHS [Suspect]
     Indication: RADIOTHERAPY
     Dosage: 200 MG ORALLY @BEDTIME
     Route: 048
     Dates: start: 20040107, end: 20040112
  3. LORAZEPAM [Concomitant]
  4. DEXAMETHASONE [Concomitant]
  5. NEXIUM [Concomitant]
  6. MAGIC MOUTHWASH [Concomitant]
  7. AMBIEN [Concomitant]
  8. BENADRYL [Concomitant]
  9. DIFLUCAN [Concomitant]
  10. ULTRACET [Concomitant]
  11. DIFLUCAN [Concomitant]
  12. MARINOL [Concomitant]

REACTIONS (2)
  - DISEASE PROGRESSION [None]
  - LIVER DISORDER [None]
